FAERS Safety Report 16619517 (Version 4)
Quarter: 2019Q3

REPORT INFORMATION
  Report Type: Report from Study
  Country: US (occurrence: US)
  Receive Date: 20190723
  Receipt Date: 20190924
  Transmission Date: 20191004
  Serious: Yes (Other)
  Sender: FDA-Public Use
  Company Number: PHEH2019US029639

PATIENT
  Sex: Male

DRUGS (1)
  1. ENTRESTO [Suspect]
     Active Substance: SACUBITRIL\VALSARTAN
     Indication: CARDIAC FAILURE
     Dosage: UNK, BID
     Route: 048

REACTIONS (7)
  - Erythema [Unknown]
  - Arthropod bite [Unknown]
  - Ejection fraction decreased [Unknown]
  - Weight loss poor [Unknown]
  - Rash [Unknown]
  - Musculoskeletal pain [Unknown]
  - Rash erythematous [Unknown]
